FAERS Safety Report 4440383-X (Version None)
Quarter: 2004Q3

REPORT INFORMATION
  Report Type: 
  Country: None (occurrence: None)
  Receive Date: 20040903
  Receipt Date: 20040510
  Transmission Date: 20050211
  Serious: Yes (Hospitalization, Other)
  Sender: FDA-Public Use
  Company Number: US-BRISTOL-MYERS SQUIBB COMPANY-12582979

PATIENT
  Age: 63 Year
  Sex: Female

DRUGS (16)
  1. CYTOXAN [Suspect]
     Indication: NON-HODGKIN'S LYMPHOMA
     Dosage: C1,D2: 02-MAR-2004 C3,D2: 14-APR-2004 DC'D 04-MAY-2004
     Route: 042
     Dates: start: 20040324, end: 20040324
  2. DOXORUBICIN HCL [Suspect]
     Indication: NON-HODGKIN'S LYMPHOMA
     Dosage: C1,D2,8+15: 03-MAR, 09-MAR, 16-MAR-2004 C2,D2: 24-MAR-2004 RE-STARTED C4 ON 05-MAY-2004
     Route: 042
     Dates: start: 20040330, end: 20040330
  3. VINCRISTINE SULFATE [Suspect]
     Indication: NON-HODGKIN'S LYMPHOMA
     Dosage: C1,D2: 03-MAR-2004 C3,D2: 14-APR-2004 C4,D2: 05-MAY-2004
     Route: 042
     Dates: start: 20040324, end: 20040324
  4. PREDNISONE [Suspect]
     Indication: NON-HODGKIN'S LYMPHOMA
     Dosage: X 5 DAYS C1,D2: 03-MAR-2004 C3,D2: 14-APR-2004  C4,D2: 05-MAY-2004
     Route: 048
     Dates: start: 20040324, end: 20040324
  5. RITUXAN [Concomitant]
     Indication: NON-HODGKIN'S LYMPHOMA
     Dosage: C1,D1: 03-MAR-2004 C2,D1: 23-MAR-2004
     Route: 042
     Dates: start: 20040413, end: 20040413
  6. BENADRYL [Concomitant]
     Indication: PREMEDICATION
     Route: 048
  7. TAGAMET [Concomitant]
     Indication: PREMEDICATION
     Route: 042
  8. TYLENOL [Concomitant]
     Route: 048
  9. ASPIRIN [Concomitant]
  10. LANTUS [Concomitant]
     Dosage: UNITS
  11. LIPITOR [Concomitant]
  12. COMBIVENT [Concomitant]
     Dosage: 2 PUFFS
     Route: 055
  13. FLOVENT [Concomitant]
     Dosage: 2 PUFFS, TWICE DAILY
     Route: 055
  14. SEREVENT [Concomitant]
     Dosage: 2 PUFFS, TWICE DAILY
     Route: 055
  15. MULTIVITAMIN [Concomitant]
     Dosage: 400 IU
  16. INSULIN SLIDING SCALE [Concomitant]

REACTIONS (3)
  - CHEST PAIN [None]
  - DYSPNOEA [None]
  - TACHYCARDIA [None]
